FAERS Safety Report 6330503-4 (Version None)
Quarter: 2009Q3

REPORT INFORMATION
  Report Type: 
  Country: None (occurrence: None)
  Receive Date: 20090827
  Receipt Date: 20080918
  Transmission Date: 20100115
  Serious: No
  Sender: FDA-Public Use
  Company Number: A0748393A

PATIENT
  Age: 64 Year
  Sex: Female

DRUGS (10)
  1. ZOVIRAX [Suspect]
     Indication: GENITAL HERPES
     Dosage: 50MG PER DAY
     Route: 048
     Dates: start: 20020101
  2. ACYCLOVIR [Suspect]
     Indication: GENITAL HERPES
     Dosage: 50MG PER DAY
     Route: 048
     Dates: start: 20020101
  3. ZANTAC [Concomitant]
  4. CLARITIN [Concomitant]
  5. DESYREL [Concomitant]
  6. CRESTOR [Concomitant]
  7. FOSAMAX [Concomitant]
  8. CENTRUM [Concomitant]
  9. CALCIUM [Concomitant]
  10. VITAMIN D [Concomitant]

REACTIONS (1)
  - DRUG INEFFECTIVE [None]
